FAERS Safety Report 5008785-0 (Version None)
Quarter: 2006Q2

REPORT INFORMATION
  Report Type: 
  Country: None (occurrence: None)
  Receive Date: 20060518
  Receipt Date: 20060504
  Transmission Date: 20061013
  Serious: Yes (Hospitalization)
  Sender: FDA-Public Use
  Company Number: USA-2005-0018865

PATIENT
  Age: 35 Year
  Sex: Male

DRUGS (10)
  1. MORPHINE SULFATE [Suspect]
     Indication: PAIN
     Dosage: UNK, SEE TEXT, UNKNOWN
     Route: 065
  2. MORPHINE SULFATE [Concomitant]
  3. OXYCONTIN [Concomitant]
  4. FLEXERIL [Concomitant]
  5. TRAZODONE HCL [Concomitant]
  6. FLOVENT [Concomitant]
  7. ALBUTEROL [Concomitant]
  8. KEFLEX [Concomitant]
  9. PROMETHAZINE [Concomitant]
  10. AMOXICILLIN [Concomitant]

REACTIONS (28)
  - ANGINA PECTORIS [None]
  - ASTHMA [None]
  - BACK PAIN [None]
  - BALANCE DISORDER [None]
  - BURNING SENSATION [None]
  - DYSSTASIA [None]
  - HAEMATOCHEZIA [None]
  - HYPOAESTHESIA [None]
  - HYPOKINESIA [None]
  - INSOMNIA [None]
  - IRRITABLE BOWEL SYNDROME [None]
  - JOINT RANGE OF MOTION DECREASED [None]
  - JOINT SWELLING [None]
  - LOBAR PNEUMONIA [None]
  - MUSCULOSKELETAL STIFFNESS [None]
  - MYALGIA [None]
  - ONYCHOMYCOSIS [None]
  - PAIN [None]
  - PAIN IN EXTREMITY [None]
  - PARAESTHESIA [None]
  - PERICARDITIS [None]
  - PLEURISY [None]
  - REFUSAL OF TREATMENT BY PATIENT [None]
  - SINUS CONGESTION [None]
  - SKIN EXFOLIATION [None]
  - THERAPEUTIC RESPONSE DECREASED [None]
  - TINEA PEDIS [None]
  - WEIGHT DECREASED [None]
